FAERS Safety Report 16568032 (Version 2)
Quarter: 2019Q3

REPORT INFORMATION
  Report Type: Report from Study
  Country: MX (occurrence: MX)
  Receive Date: 20190712
  Receipt Date: 20190806
  Transmission Date: 20191004
  Serious: Yes (Other)
  Sender: FDA-Public Use
  Company Number: PHHY2019MX161615

PATIENT
  Age: 82 Year
  Sex: Female
  Weight: 55 kg

DRUGS (6)
  1. COVERSUM [Concomitant]
     Active Substance: PERINDOPRIL
     Indication: HYPERTENSION
     Dosage: 1 DF, QD
     Route: 048
     Dates: end: 201906
  2. TRAVATAN [Suspect]
     Active Substance: TRAVOPROST
     Indication: CATARACT
     Dosage: 1 DRP (EACH EYE), QD
     Route: 047
  3. LEVOTHYROXINE. [Concomitant]
     Active Substance: LEVOTHYROXINE
     Indication: HYPOTHYROIDISM
     Dosage: 0.5 DF, QD (A YEAR AND HALF AGO)
     Route: 048
  4. CO-DIOVAN [Suspect]
     Active Substance: HYDROCHLOROTHIAZIDE\VALSARTAN
     Indication: HYPERTENSION
     Dosage: 1 DF (HYDROCHLOROTHIAZIDE 12.5 MG, VALSARTAN 80 MG), QD
     Route: 048
  5. MICARDIS [Concomitant]
     Active Substance: TELMISARTAN
     Indication: HYPERTENSION
     Dosage: 1 DF, QD
     Route: 048
  6. EXFORGE [Suspect]
     Active Substance: AMLODIPINE BESYLATE\VALSARTAN
     Indication: HYPERTENSION
     Dosage: 1 DF (AMLODIPINE 5 MG, VALSARTAN 160 MG), QD
     Route: 048
     Dates: start: 201906

REACTIONS (1)
  - Blood pressure increased [Recovered/Resolved]

NARRATIVE: CASE EVENT DATE: 201906
